FAERS Safety Report 10478046 (Version 1)
Quarter: 2014Q3

REPORT INFORMATION
  Report Type: Spontaneous
  Country: US (occurrence: None)
  Receive Date: 20140924
  Receipt Date: 20140924
  Transmission Date: 20150326
  Serious: Yes (Other)
  Sender: FDA-Public Use
  Company Number: 2009S1007641

PATIENT
  Age: 71 Year
  Sex: Female
  Weight: 108.86 kg

DRUGS (9)
  1. SINGULAIR (MONTELUKAST SODIUM) [Concomitant]
  2. PHOSPHO-SODA [Suspect]
     Active Substance: SODIUM PHOSPHATE, DIBASIC\SODIUM PHOSPHATE, MONOBASIC
     Indication: COLONOSCOPY
     Dates: start: 20081216
  3. BABY ASPIRIN (ACETYLSALICYLIC ACID) [Concomitant]
     Active Substance: ASPIRIN
  4. LORTAB (PARACETAMOL, HYDROCODONE BITARTRATE) [Concomitant]
  5. SYNTHROID [Concomitant]
     Active Substance: LEVOTHYROXINE SODIUM
  6. BENICAR [Concomitant]
     Active Substance: OLMESARTAN MEDOXOMIL
  7. PANTOPRAZOLE 9PANTOPRAZOLE) [Concomitant]
  8. PATANOL (OLOPATADINE HYDROCHLORIDE) [Concomitant]
  9. CRESTOR [Concomitant]
     Active Substance: ROSUVASTATIN CALCIUM

REACTIONS (9)
  - Renal cyst [None]
  - Nephrogenic anaemia [None]
  - Hypertensive nephropathy [None]
  - Myalgia [None]
  - Renal atrophy [None]
  - Renal failure chronic [None]
  - Hyperparathyroidism secondary [None]
  - Hypovitaminosis [None]
  - Nausea [None]

NARRATIVE: CASE EVENT DATE: 20090112
